FAERS Safety Report 9319228 (Version 1)
Quarter: 2013Q2

REPORT INFORMATION
  Report Type: Spontaneous
  Country: US (occurrence: None)
  Receive Date: 20130523
  Receipt Date: 20130523
  Transmission Date: 20140414
  Serious: Yes (Other)
  Sender: FDA-Public Use
  Company Number: 2013-01146

PATIENT
  Age: 70 Year
  Sex: Female
  Weight: 71.67 kg

DRUGS (6)
  1. CEFDINIR [Suspect]
     Indication: BRONCHITIS
     Dosage: 600 MG (300 MG, 2 IN 1 D)
     Route: 048
     Dates: start: 20121207, end: 20121212
  2. PREGABALIN (LYRICAL) [Concomitant]
  3. LEVOTHYROXIN (SYNTHROID) [Concomitant]
  4. CLONAZEPAM [Concomitant]
  5. DIAZEPAM [Concomitant]
  6. MODAFINIL (PROVIGIL) [Concomitant]

REACTIONS (7)
  - Coordination abnormal [None]
  - Dyspnoea [None]
  - Speech disorder [None]
  - Increased upper airway secretion [None]
  - Cough [None]
  - Fall [None]
  - Hypersensitivity [None]
